FAERS Safety Report 8220816-3 (Version None)
Quarter: 2012Q1

REPORT INFORMATION
  Report Type: 
  Country: None (occurrence: None)
  Receive Date: 20120319
  Receipt Date: 20120316
  Transmission Date: 20120608
  Serious: Yes (Death)
  Sender: FDA-Public Use
  Company Number: AU-B.I. PHARMACEUTICALS,INC./RIDGEFIELD-2012-AU-00595AU

PATIENT
  Age: 93 Year
  Sex: Female

DRUGS (8)
  1. VENTOLIN [Concomitant]
  2. SPIRIVA [Concomitant]
  3. FOSAMAX [Concomitant]
  4. LASIX [Concomitant]
  5. PERINDOPRIL ERBUMINE [Concomitant]
  6. LEVOTHYROXINE SODIUM [Concomitant]
  7. FLUTICASONE PROPIONATE/SALMETEROL [Concomitant]
  8. PRADAXA [Suspect]
     Indication: ATRIAL FIBRILLATION
     Dosage: 220 MG
     Dates: start: 20110908

REACTIONS (1)
  - CEREBROVASCULAR ACCIDENT [None]
